FAERS Safety Report 5114992-9 (Version None)
Quarter: 2006Q3

REPORT INFORMATION
  Report Type: 
  Country: None (occurrence: None)
  Receive Date: 20060922
  Receipt Date: 20060915
  Transmission Date: 20061208
  Serious: Yes (Death)
  Sender: FDA-Public Use
  Company Number: SUS1-2006-00451

PATIENT
  Age: 17 Year
  Sex: Male
  Weight: 81.6 kg

DRUGS (5)
  1. ADDERALL 10 [Suspect]
     Indication: ATTENTION DEFICIT/HYPERACTIVITY DISORDER
     Dosage: SEE IMAGE
     Dates: start: 20060322, end: 20060301
  2. ADDERALL 10 [Suspect]
     Indication: ATTENTION DEFICIT/HYPERACTIVITY DISORDER
     Dosage: SEE IMAGE
     Dates: start: 20060307, end: 20060321
  3. ADDERALL 10 [Suspect]
     Indication: ATTENTION DEFICIT/HYPERACTIVITY DISORDER
     Dosage: SEE IMAGE
     Dates: start: 20060301, end: 20060401
  4. LAMICTAL [Concomitant]
  5. SYNTHROID [Concomitant]

REACTIONS (5)
  - ARRHYTHMIA [None]
  - FALL [None]
  - ILL-DEFINED DISORDER [None]
  - MYOCARDIAL FIBROSIS [None]
  - SUDDEN DEATH [None]
